FAERS Safety Report 25756090 (Version 1)
Quarter: 2025Q3

REPORT INFORMATION
  Report Type: Report from Study
  Country: CA (occurrence: CA)
  Receive Date: 20250903
  Receipt Date: 20250903
  Transmission Date: 20251021
  Serious: Yes (Other)
  Sender: PFIZER
  Company Number: CA-PFIZER INC-202500171956

PATIENT
  Age: 66 Year
  Sex: Female

DRUGS (10)
  1. ADALIMUMAB [Suspect]
     Active Substance: ADALIMUMAB
     Indication: Crohn^s disease
  2. AMITRIPTYLINE [Concomitant]
     Active Substance: AMITRIPTYLINE
  3. CARBAMAZEPINE [Concomitant]
     Active Substance: CARBAMAZEPINE
  4. HIDROMORFONA [HYDROMORPHONE] [Concomitant]
  5. HYDROCHLOROTHIAZIDE\VALSARTAN [Concomitant]
     Active Substance: HYDROCHLOROTHIAZIDE\VALSARTAN
  6. MESALAMINE [Concomitant]
     Active Substance: MESALAMINE
  7. METOCLOPRAMIDE [Concomitant]
     Active Substance: METOCLOPRAMIDE
  8. NIFEDIPINE [Concomitant]
     Active Substance: NIFEDIPINE
  9. ALBUTEROL [Concomitant]
     Active Substance: ALBUTEROL
  10. SERTRALINE [Concomitant]
     Active Substance: SERTRALINE HYDROCHLORIDE

REACTIONS (4)
  - Crohn^s disease [Recovering/Resolving]
  - Gastrointestinal infection [Recovering/Resolving]
  - Neuropathy peripheral [Recovering/Resolving]
  - Weight decreased [Recovering/Resolving]
